FAERS Safety Report 15515963 (Version 5)
Quarter: 2019Q1

REPORT INFORMATION
  Report Type: Spontaneous
  Country: US (occurrence: US)
  Receive Date: 20181017
  Receipt Date: 20190108
  Transmission Date: 20190417
  Serious: Yes (Hospitalization)
  Sender: FDA-Public Use
  Company Number: US-PFIZER INC-2018414889

PATIENT
  Age: 70 Year
  Sex: Male

DRUGS (3)
  1. VITAMIN D [Concomitant]
     Active Substance: CHOLECALCIFEROL
     Dosage: UNK UNK, 2X/DAY (IN MORNING AND DINNER TIME)
  2. SUTENT [Suspect]
     Active Substance: SUNITINIB MALATE
     Indication: METASTATIC RENAL CELL CARCINOMA
     Dosage: 50 MG, CYCLIC (2 WEEKS ON AND 2 WEEKS OFF CYCLE)
  3. SUTENT [Suspect]
     Active Substance: SUNITINIB MALATE
     Dosage: 50 MG, CYCLIC (2 WEEKS ON AND 1 WEEKS OFF)

REACTIONS (4)
  - Dehydration [Recovered/Resolved]
  - Diarrhoea [Not Recovered/Not Resolved]
  - Dysstasia [Unknown]
  - Gait inability [Not Recovered/Not Resolved]

NARRATIVE: CASE EVENT DATE: 2016
